FAERS Safety Report 5844401-3 (Version None)
Quarter: 2008Q3

REPORT INFORMATION
  Report Type: 
  Country: None (occurrence: None)
  Receive Date: 20080813
  Receipt Date: 20080804
  Transmission Date: 20090109
  Serious: Yes (Hospitalization)
  Sender: FDA-Public Use
  Company Number: US-MERCK-0808USA00632

PATIENT
  Age: 63 Year
  Sex: Female

DRUGS (9)
  1. FOSAMAX [Suspect]
     Indication: OSTEOPOROSIS
     Route: 048
  2. GLIPIZIDE [Concomitant]
     Route: 065
  3. GLUCOPHAGE [Concomitant]
     Route: 065
  4. AZOR (AMLODIPINE BESYLATE (+) OLMESARTAN MEDOXOMIL) [Concomitant]
     Route: 065
  5. LEVOTHROID [Concomitant]
     Route: 065
  6. PRILOSEC [Concomitant]
     Route: 048
  7. ZOCOR [Suspect]
     Route: 048
     Dates: end: 20080701
  8. [THERAPY UNSPECIFIED] [Concomitant]
     Route: 065
  9. PRINIVIL [Suspect]
     Route: 048

REACTIONS (1)
  - PANCREATITIS [None]
